FAERS Safety Report 6925467-6 (Version None)
Quarter: 2010Q3

REPORT INFORMATION
  Report Type: 
  Country: None (occurrence: None)
  Receive Date: 20100813
  Receipt Date: 20100813
  Transmission Date: 20110219
  Serious: No
  Sender: FDA-Public Use
  Company Number: None

PATIENT
  Sex: Male
  Weight: 107.9561 kg

DRUGS (1)
  1. AMBISOME [Suspect]
     Dosage: 350MG DAILY IV
     Route: 042
     Dates: start: 20100730, end: 20100809

REACTIONS (1)
  - BLOOD CREATININE INCREASED [None]
